FAERS Safety Report 5281969-2 (Version None)
Quarter: 2007Q1

REPORT INFORMATION
  Report Type: 
  Country: None (occurrence: None)
  Receive Date: 20070330
  Receipt Date: 20070316
  Transmission Date: 20070707
  Serious: Yes (Death, Hospitalization)
  Sender: FDA-Public Use
  Company Number: FR-ELI_LILLY_AND_COMPANY-FR200703005399

PATIENT
  Age: 54 Year
  Sex: Male

DRUGS (8)
  1. GEMCITABINE HCL [Suspect]
     Indication: NON-SMALL CELL LUNG CANCER
     Dates: start: 20050201
  2. CARBOPLATIN [Concomitant]
     Indication: NON-SMALL CELL LUNG CANCER
     Dates: start: 20050201
  3. CYCLOSPORINE [Concomitant]
     Indication: IMMUNOSUPPRESSION
     Dates: start: 19970101, end: 20020901
  4. PREDNISONE [Concomitant]
     Indication: IMMUNOSUPPRESSION
     Dosage: 5 MG, DAILY (1/D)
     Dates: start: 19970101
  5. MYCOPHENOLATE MOFETIL [Concomitant]
     Indication: IMMUNOSUPPRESSION
     Dosage: 2 G, DAILY (1/D)
     Dates: start: 19970101
  6. MYCOPHENOLATE MOFETIL [Concomitant]
     Dosage: 1 G, DAILY (1/D)
     Dates: start: 20020901
  7. ANTITHYMOCYTE IMMUNOGLOBULIN [Concomitant]
     Indication: IMMUNOSUPPRESSION
     Dates: start: 19970101
  8. SIROLIMUS [Concomitant]
     Dates: start: 20050901

REACTIONS (2)
  - DISEASE PROGRESSION [None]
  - THROMBOTIC MICROANGIOPATHY [None]
